FAERS Safety Report 17467790 (Version 1)
Quarter: 2020Q1

REPORT INFORMATION
  Report Type: Other
  Country: ES (occurrence: ES)
  Receive Date: 20200227
  Receipt Date: 20200227
  Transmission Date: 20200409
  Serious: Yes (Hospitalization)
  Sender: FDA-Public Use
  Company Number: ES-GLENMARK PHARMACEUTICALS-2020GMK046254

PATIENT

DRUGS (12)
  1. ESBRIET [Suspect]
     Active Substance: PIRFENIDONE
     Indication: IDIOPATHIC PULMONARY FIBROSIS
     Dosage: 801 MG, TID (EVERY 8 HOURS)
     Route: 048
     Dates: start: 20191003, end: 20200107
  2. PANTOPRAZOL [Concomitant]
     Active Substance: PANTOPRAZOLE SODIUM
     Indication: PRODUCT USED FOR UNKNOWN INDICATION
     Dosage: 20 UNK, UNK
     Route: 048
     Dates: start: 20191008
  3. EZETIMIBE. [Suspect]
     Active Substance: EZETIMIBE
     Indication: DYSLIPIDAEMIA
     Dosage: 10 MG, OD
     Route: 048
     Dates: start: 20190620, end: 20200107
  4. LERCANIDIPINO [Concomitant]
     Indication: HYPERTENSION
     Dosage: 10 UNK, UNK
     Route: 065
     Dates: start: 20190426
  5. ADIRO [Concomitant]
     Active Substance: ASPIRIN
     Indication: MYOCARDIAL ISCHAEMIA
     Dosage: 100 UNK, UNK
     Route: 048
     Dates: start: 20161014
  6. ROSUVASTATIN CALCIUM. [Suspect]
     Active Substance: ROSUVASTATIN CALCIUM
     Indication: DYSLIPIDAEMIA
     Dosage: 20 MG, OD
     Route: 048
     Dates: start: 20181205, end: 20200107
  7. EUTIROX [Concomitant]
     Active Substance: LEVOTHYROXINE SODIUM
     Indication: HYPOPITUITARISM
     Dosage: UNK
     Route: 048
     Dates: start: 20200124
  8. TESTEX [Concomitant]
     Active Substance: TESTOSTERONE
     Indication: HYPOPITUITARISM
     Dosage: UNK (FORMULATION: SOLUCION INYECTABLE; 1 AMPOLLA DE 2 ML)
     Route: 065
     Dates: start: 20161014
  9. HIDROALTESONA [Concomitant]
     Active Substance: HYDROCORTISONE
     Indication: HYPOPITUITARISM
     Dosage: 20 UNK, UNK
     Route: 048
     Dates: start: 20081128
  10. EBASTEL [Concomitant]
     Active Substance: EBASTINE
     Indication: PRODUCT USED FOR UNKNOWN INDICATION
     Dosage: UNK
     Route: 048
     Dates: start: 20190530
  11. RAMIPRIL. [Concomitant]
     Active Substance: RAMIPRIL
     Indication: HYPERTENSION
     Dosage: 10 UNK, UNK
     Route: 048
     Dates: start: 20181116
  12. BISOPROLOL [Concomitant]
     Active Substance: BISOPROLOL
     Indication: PRODUCT USED FOR UNKNOWN INDICATION
     Dosage: 2.5 UNK, UNK
     Route: 048
     Dates: start: 20180803

REACTIONS (3)
  - Hepatitis [Recovering/Resolving]
  - Hypocoagulable state [Recovered/Resolved]
  - Hyperbilirubinaemia [Recovering/Resolving]

NARRATIVE: CASE EVENT DATE: 20200107
